FAERS Safety Report 16556553 (Version 2)
Quarter: 2019Q3

REPORT INFORMATION
  Report Type: Report from Study
  Country: None (occurrence: CO)
  Receive Date: 20190711
  Receipt Date: 20190807
  Transmission Date: 20191004
  Serious: Yes (Other)
  Sender: FDA-Public Use
  Company Number: CO-ABBVIE-19K-036-2848040-00

PATIENT
  Sex: Female

DRUGS (2)
  1. HUMIRA [Suspect]
     Active Substance: ADALIMUMAB
     Indication: PRODUCT USED FOR UNKNOWN INDICATION
     Route: 058
     Dates: start: 20141001
  2. HUMIRA [Suspect]
     Active Substance: ADALIMUMAB
     Indication: PSORIASIS
     Route: 058
     Dates: end: 20181228

REACTIONS (12)
  - Rib fracture [Unknown]
  - Fall [Unknown]
  - Lung disorder [Recovering/Resolving]
  - Musculoskeletal pain [Recovering/Resolving]
  - Asphyxia [Not Recovered/Not Resolved]
  - Chest pain [Recovering/Resolving]
  - Weight decreased [Recovering/Resolving]
  - Neck pain [Recovering/Resolving]
  - Choking [Recovering/Resolving]
  - Decreased appetite [Recovering/Resolving]
  - Gastric ulcer [Recovering/Resolving]
  - Dyspepsia [Recovering/Resolving]

NARRATIVE: CASE EVENT DATE: 2016
